FAERS Safety Report 8811835 (Version 1)
Quarter: 2012Q4

REPORT INFORMATION
  Report Type: 
  Country: FR (occurrence: FR)
  Receive Date: 20120927
  Receipt Date: 20120927
  Transmission Date: 20130627
  Serious: Yes (Hospitalization)
  Sender: FDA-Public Use
  Company Number: FR-GLAXOSMITHKLINE-B0831311A

PATIENT
  Age: 48 Year
  Sex: Male

DRUGS (6)
  1. ZELITREX [Suspect]
     Indication: PRODUCT USED FOR UNKNOWN INDICATION
     Dosage: 500MG Unknown
     Route: 048
     Dates: end: 20080709
  2. AMBISOME [Suspect]
     Indication: PRODUCT USED FOR UNKNOWN INDICATION
     Route: 042
     Dates: start: 20080702, end: 20080709
  3. ODRIK [Suspect]
     Indication: PRODUCT USED FOR UNKNOWN INDICATION
     Dosage: 4MG Unknown
     Route: 048
     Dates: end: 20080709
  4. TIENAM [Concomitant]
     Indication: LUNG INFECTION
     Dates: start: 20080628
  5. BACTRIM [Concomitant]
     Indication: LUNG INFECTION
     Dates: start: 20080628
  6. CHEMOTHERAPY [Concomitant]
     Indication: ACUTE MYELOID LEUKAEMIA

REACTIONS (1)
  - Blood creatinine increased [Recovered/Resolved]
